FAERS Safety Report 15362143 (Version 1)
Quarter: 2018Q3

REPORT INFORMATION
  Report Type: Spontaneous
  Country: US (occurrence: US)
  Receive Date: 20180831
  Receipt Date: 20180831
  Transmission Date: 20181010
  Serious: No
  Sender: FDA-Public Use
  Company Number: None

PATIENT
  Age: 57 Year
  Sex: Female
  Weight: 79.83 kg

DRUGS (2)
  1. ATORVASTATIN 20MG [Suspect]
     Active Substance: ATORVASTATIN
  2. SIMVASTATIN 20MG [Suspect]
     Active Substance: SIMVASTATIN
     Indication: HYPERLIPIDAEMIA
     Route: 048
     Dates: start: 200606

REACTIONS (2)
  - Muscle spasms [None]
  - Hypoaesthesia [None]
